FAERS Safety Report 9765758 (Version 1)
Quarter: 2013Q4

REPORT INFORMATION
  Report Type: Spontaneous
  Country: US (occurrence: US)
  Receive Date: 20131217
  Receipt Date: 20131217
  Transmission Date: 20140711
  Serious: No
  Sender: FDA-Public Use
  Company Number: US-BIOGENIDEC-2013BI116339

PATIENT
  Sex: Female
  Weight: 81 kg

DRUGS (12)
  1. TECFIDERA [Suspect]
     Indication: MULTIPLE SCLEROSIS
     Route: 048
     Dates: start: 20131115
  2. TECFIDERA [Suspect]
     Indication: MULTIPLE SCLEROSIS
     Route: 048
  3. BUPROPRION [Concomitant]
  4. LOSARTAN [Concomitant]
  5. CHERATUSSIN [Concomitant]
  6. AZITHROMYCIN [Concomitant]
  7. SULFAMETHAZOLE [Concomitant]
  8. FLUCONAZOLE [Concomitant]
  9. NITROFURANTOIN [Concomitant]
  10. VESICARE [Concomitant]
  11. PROMETHAZINE [Concomitant]
  12. DOXYCYCLINE [Concomitant]

REACTIONS (4)
  - Hyperaesthesia [Unknown]
  - Gastric disorder [Unknown]
  - Hot flush [Unknown]
  - Diarrhoea [Unknown]
